FAERS Safety Report 18643469 (Version 1)
Quarter: 2020Q4

REPORT INFORMATION
  Report Type: Spontaneous
  Country: CN (occurrence: CN)
  Receive Date: 20201221
  Receipt Date: 20201221
  Transmission Date: 20210114
  Serious: Yes (Other)
  Sender: FDA-Public Use
  Company Number: CN-PFIZER INC-2020496913

PATIENT
  Age: 20 Year
  Sex: Male
  Weight: 36 kg

DRUGS (2)
  1. CALCIUM LEVOFOLINATE [Concomitant]
     Active Substance: LEVOLEUCOVORIN CALCIUM
     Indication: THERAPEUTIC PROCEDURE
     Dosage: 100 MG, 4X/DAY
     Route: 041
     Dates: start: 20200913, end: 20200917
  2. METHOTREXATE. [Suspect]
     Active Substance: METHOTREXATE
     Indication: ACUTE LYMPHOCYTIC LEUKAEMIA
     Dosage: 5000.000 MG/M3, 1X/DAY
     Route: 041
     Dates: start: 20200912, end: 20200912

REACTIONS (3)
  - Mouth ulceration [Recovering/Resolving]
  - Drug level increased [Unknown]
  - Oral pain [Unknown]

NARRATIVE: CASE EVENT DATE: 2020
